FAERS Safety Report 17967232 (Version 1)
Quarter: 2020Q2

REPORT INFORMATION
  Report Type: Spontaneous
  Country: US (occurrence: US)
  Receive Date: 20200630
  Receipt Date: 20200630
  Transmission Date: 20200714
  Serious: No
  Sender: FDA-Public Use
  Company Number: None

PATIENT
  Age: 87 Year
  Sex: Male
  Weight: 52.6 kg

DRUGS (10)
  1. CHOLECALCIFEROL 2,000 IU PO DAILY [Concomitant]
     Dates: start: 20200626, end: 20200630
  2. CALCIUM/VITAMIN D 500MG/200 IU PO BID [Concomitant]
     Dates: start: 20200626, end: 20200630
  3. FAMOTIDINE 20 MG IV Q24H [Concomitant]
     Dates: start: 20200626, end: 20200629
  4. REMDESIVIR. [Suspect]
     Active Substance: REMDESIVIR
     Indication: COVID-19 PNEUMONIA
     Dosage: ?          OTHER FREQUENCY:ONE TIME ONLY;?
     Route: 042
     Dates: start: 20200627, end: 20200627
  5. GUAIFENESIN 600 MG ER PO BID [Concomitant]
     Dates: start: 20200626
  6. ASCORBIC ACID 1,000 MG PO DAILY WITH FOOD [Concomitant]
     Dates: start: 20200622, end: 20200630
  7. METHYLPREDNISOLONE 40 MG IV Q12H [Concomitant]
     Dates: start: 20200626
  8. ENOXAPARIN 30 MG SQ Q12H [Concomitant]
     Dates: start: 20200626, end: 20200630
  9. ZINC SULFATE 220 MG PO DAILY [Concomitant]
     Dates: start: 20200626, end: 20200630
  10. DOCUSATE 200 MG PO BID [Concomitant]
     Dates: start: 20200626, end: 20200630

REACTIONS (1)
  - Hypotension [None]

NARRATIVE: CASE EVENT DATE: 20200627
